FAERS Safety Report 4411745-1 (Version None)
Quarter: 2004Q3

REPORT INFORMATION
  Report Type: 
  Country: None (occurrence: None)
  Receive Date: 20040729
  Receipt Date: 20040729
  Transmission Date: 20050211
  Serious: Yes (Hospitalization)
  Sender: FDA-Public Use
  Company Number: None

PATIENT
  Age: 10 Year
  Sex: Male
  Weight: 24.9478 kg

DRUGS (3)
  1. OMNICEF [Suspect]
     Indication: LOBAR PNEUMONIA
     Dosage: ONE TSP B.I.D. ORAL
     Route: 048
     Dates: start: 20040630, end: 20040705
  2. ZITHROMAX [Suspect]
     Indication: LOBAR PNEUMONIA
     Dosage: 1 1/3 TSP Q.D. ORAL
     Route: 048
     Dates: start: 20040630, end: 20040704
  3. RECOMBINANT GROWTH HORMONE [Concomitant]

REACTIONS (1)
  - STEVENS-JOHNSON SYNDROME [None]
